FAERS Safety Report 10202781 (Version 1)
Quarter: 2014Q2

REPORT INFORMATION
  Report Type: Report from Study
  Country: RS (occurrence: RS)
  Receive Date: 20140528
  Receipt Date: 20140528
  Transmission Date: 20141212
  Serious: Yes (Other)
  Sender: FDA-Public Use
  Company Number: RS-ROCHE-1408708

PATIENT
  Sex: Female
  Weight: 52 kg

DRUGS (2)
  1. TRASTUZUMAB [Suspect]
     Indication: BREAST CANCER
     Dosage: DOSE ADMINISTERED DURING 1ST CYCLE
     Route: 065
     Dates: start: 20070222
  2. TRASTUZUMAB [Suspect]
     Dosage: DOSE ADMINISTERED DURING CYCLES 2 - 8
     Route: 065
     Dates: end: 20070718

REACTIONS (1)
  - Cardiac disorder [Unknown]
